FAERS Safety Report 8759659 (Version 1)
Quarter: 2012Q4

REPORT INFORMATION
  Report Type: 
  Country: NZ (occurrence: NZ)
  Receive Date: 20120829
  Receipt Date: 20120829
  Transmission Date: 20130627
  Serious: Yes (Hospitalization)
  Sender: FDA-Public Use
  Company Number: NZ-AMGEN-NZLSP2012054332

PATIENT
  Sex: Female

DRUGS (2)
  1. NEULASTA [Suspect]
     Indication: PROPHYLAXIS
  2. TAXOTERE [Concomitant]
     Indication: BREAST CANCER

REACTIONS (3)
  - Febrile neutropenia [Unknown]
  - Drug ineffective [Unknown]
  - Incorrect storage of drug [Unknown]
